FAERS Safety Report 10222134 (Version 1)
Quarter: 2014Q2

REPORT INFORMATION
  Report Type: Spontaneous
  Country: US (occurrence: US)
  Receive Date: 20140606
  Receipt Date: 20140606
  Transmission Date: 20141212
  Serious: No
  Sender: FDA-Public Use
  Company Number: US-BIOMARINAP-US-2014-103105

PATIENT
  Age: 10 Year
  Sex: Female
  Weight: 15.8 kg

DRUGS (3)
  1. NAGLAZYME [Suspect]
     Indication: MUCOPOLYSACCHARIDOSIS VI
     Dosage: 15 MG, QW
     Route: 041
     Dates: start: 200710
  2. MULTIVITAMINS [Concomitant]
     Indication: PRODUCT USED FOR UNKNOWN INDICATION
     Dosage: 5 ML, QD
  3. NASONEX [Concomitant]
     Indication: PRODUCT USED FOR UNKNOWN INDICATION
     Dosage: UNK, PRN
     Route: 045

REACTIONS (1)
  - Upper respiratory tract infection [Recovered/Resolved]
